FAERS Safety Report 20363094 (Version 11)
Quarter: 2025Q3

REPORT INFORMATION
  Report Type: Report from Study
  Country: CA (occurrence: CA)
  Receive Date: 20220121
  Receipt Date: 20250822
  Transmission Date: 20251021
  Serious: Yes (Other)
  Sender: TAKEDA
  Company Number: CA-TAKEDA-2022TUS003992

PATIENT
  Age: 66 Year
  Sex: Male

DRUGS (24)
  1. VEDOLIZUMAB [Suspect]
     Active Substance: VEDOLIZUMAB
     Indication: Crohn^s disease
  2. VEDOLIZUMAB [Suspect]
     Active Substance: VEDOLIZUMAB
  3. VEDOLIZUMAB [Suspect]
     Active Substance: VEDOLIZUMAB
  4. VEDOLIZUMAB [Suspect]
     Active Substance: VEDOLIZUMAB
  5. VEDOLIZUMAB [Suspect]
     Active Substance: VEDOLIZUMAB
  6. VEDOLIZUMAB [Suspect]
     Active Substance: VEDOLIZUMAB
  7. VEDOLIZUMAB [Suspect]
     Active Substance: VEDOLIZUMAB
  8. OZEMPIC [Concomitant]
     Active Substance: SEMAGLUTIDE
  9. ATENOLOL [Concomitant]
     Active Substance: ATENOLOL
  10. SERTRALINE [Concomitant]
     Active Substance: SERTRALINE HYDROCHLORIDE
  11. ROSUVASTATIN [Concomitant]
     Active Substance: ROSUVASTATIN
  12. DAPAGLIFLOZIN [Concomitant]
     Active Substance: DAPAGLIFLOZIN
  13. METFORMIN [Concomitant]
     Active Substance: METFORMIN HYDROCHLORIDE
  14. CALCIUM CARBONATE [Concomitant]
     Active Substance: CALCIUM CARBONATE
  15. PURINETHOL [Concomitant]
     Active Substance: MERCAPTOPURINE
  16. VALSARTAN [Concomitant]
     Active Substance: VALSARTAN
  17. BUPROPION [Concomitant]
     Active Substance: BUPROPION
  18. INDAPAMIDE [Concomitant]
     Active Substance: INDAPAMIDE
  19. GLICLAZIDE [Concomitant]
     Active Substance: GLICLAZIDE
  20. ASPIRIN [Concomitant]
     Active Substance: ASPIRIN
  21. PANTOPRAZOLE SODIUM [Concomitant]
     Active Substance: PANTOPRAZOLE SODIUM
  22. AMLODIPINE [Concomitant]
     Active Substance: AMLODIPINE BESYLATE
  23. VITAMIN B12 [Concomitant]
     Active Substance: CYANOCOBALAMIN
  24. IRON [Concomitant]
     Active Substance: IRON

REACTIONS (9)
  - Intestinal obstruction [Unknown]
  - Diarrhoea [Unknown]
  - Frequent bowel movements [Not Recovered/Not Resolved]
  - Faeces soft [Not Recovered/Not Resolved]
  - Hordeolum [Recovered/Resolved]
  - Impaired quality of life [Unknown]
  - Defaecation urgency [Unknown]
  - Depressed mood [Unknown]
  - Arthralgia [Unknown]

NARRATIVE: CASE EVENT DATE: 20241224
